FAERS Safety Report 5832936-9 (Version None)
Quarter: 2008Q3

REPORT INFORMATION
  Report Type: 
  Country: None (occurrence: None)
  Receive Date: 20080804
  Receipt Date: 20080728
  Transmission Date: 20090109
  Serious: Yes (Other)
  Sender: FDA-Public Use
  Company Number: DE-WYE-G01582508

PATIENT
  Sex: Male

DRUGS (5)
  1. LORAZEPAM [Suspect]
     Dosage: UNKNOWN
     Route: 048
  2. DOXEPIN HCL [Suspect]
     Dosage: UNKNOWN
     Route: 048
  3. NEUROCIL [Suspect]
     Dosage: UNKNOWN
     Route: 048
  4. TREVILOR RETARD [Suspect]
     Dosage: UNKNOWN
     Route: 048
  5. AMLODIPINE [Suspect]
     Dosage: UNKNOWN
     Route: 048

REACTIONS (1)
  - DRUG DEPENDENCE [None]
